FAERS Safety Report 5906159-9 (Version None)
Quarter: 2008Q4

REPORT INFORMATION
  Report Type: 
  Country: None (occurrence: None)
  Receive Date: 20081002
  Receipt Date: 20080925
  Transmission Date: 20090506
  Serious: Yes (Hospitalization)
  Sender: FDA-Public Use
  Company Number: FR-WYE-G02234808

PATIENT
  Sex: Male

DRUGS (2)
  1. TORISEL [Suspect]
     Dosage: 25 MG EVERY 1 CYC
     Route: 042
     Dates: start: 20080101, end: 20080910
  2. AVASTIN [Suspect]
     Dosage: 750 MG EVERY 1 CYC
     Route: 042
     Dates: start: 20080101, end: 20080901

REACTIONS (3)
  - HYPOTENSION [None]
  - HYPOXIA [None]
  - RENAL FAILURE [None]
